FAERS Safety Report 7774658-3 (Version None)
Quarter: 2011Q3

REPORT INFORMATION
  Report Type: 
  Country: None (occurrence: None)
  Receive Date: 20110923
  Receipt Date: 20110915
  Transmission Date: 20111222
  Serious: Yes (Hospitalization, Other)
  Sender: FDA-Public Use
  Company Number: JP-PFIZER INC-2011218773

PATIENT
  Age: 89 Year
  Sex: Female

DRUGS (3)
  1. ZOLOFT [Suspect]
     Dosage: 25 MG DAILY
     Route: 048
     Dates: start: 20110801
  2. ARICEPT [Suspect]
     Dosage: UNK
     Route: 048
     Dates: end: 20110901
  3. LENDORMIN [Concomitant]
     Dosage: HALF TABLET

REACTIONS (9)
  - TACHYCARDIA [None]
  - LOCKED-IN SYNDROME [None]
  - ATRIAL FIBRILLATION [None]
  - DYSPHAGIA [None]
  - BLOOD PRESSURE FLUCTUATION [None]
  - ARRHYTHMIA [None]
  - DYSPNOEA [None]
  - RESPIRATORY FAILURE [None]
  - AGGRESSION [None]
